FAERS Safety Report 7666563-8 (Version None)
Quarter: 2011Q3

REPORT INFORMATION
  Report Type: 
  Country: None (occurrence: None)
  Receive Date: 20110806
  Receipt Date: 20110506
  Transmission Date: 20111222
  Serious: No
  Sender: FDA-Public Use
  Company Number: US-ABBOTT-11P-163-0724675-00

PATIENT
  Sex: Male

DRUGS (6)
  1. BENICAR [Concomitant]
     Indication: PRODUCT USED FOR UNKNOWN INDICATION
  2. SIMVASTATIN [Concomitant]
     Indication: PRODUCT USED FOR UNKNOWN INDICATION
  3. ZYRTEC [Concomitant]
     Indication: HYPERSENSITIVITY
  4. NIASPAN [Suspect]
     Indication: HIGH DENSITY LIPOPROTEIN DECREASED
     Dates: start: 20110301
  5. ASPIRIN [Concomitant]
     Indication: PRODUCT USED FOR UNKNOWN INDICATION
  6. SINGULAIR [Concomitant]
     Indication: HYPERSENSITIVITY

REACTIONS (5)
  - ERYTHEMA [None]
  - HEART RATE INCREASED [None]
  - PRURITUS [None]
  - FEELING HOT [None]
  - SKIN BURNING SENSATION [None]
